FAERS Safety Report 9129636 (Version 2)
Quarter: 2013Q1

REPORT INFORMATION
  Report Type: Spontaneous
  Country: MQ (occurrence: FR)
  Receive Date: 20130228
  Receipt Date: 20130329
  Transmission Date: 20140127
  Serious: Yes (Hospitalization)
  Sender: FDA-Public Use
  Company Number: MQ-ASTRAZENECA-2013SE12387

PATIENT
  Age: 9946 Day
  Sex: Male
  Weight: 118 kg

DRUGS (4)
  1. XEROQUEL [Suspect]
     Indication: SCHIZOPHRENIA
     Route: 048
     Dates: start: 20130214, end: 20130227
  2. TERCIAN [Concomitant]
     Indication: SEDATION
     Route: 048
     Dates: start: 20130211
  3. SERESTA [Concomitant]
     Indication: SEDATION
     Route: 048
     Dates: start: 20130211
  4. GAVISCON [Concomitant]
     Indication: DYSPEPSIA

REACTIONS (3)
  - Hepatocellular injury [Recovering/Resolving]
  - Gamma-glutamyltransferase increased [Recovering/Resolving]
  - Hypertriglyceridaemia [Recovered/Resolved]
